FAERS Safety Report 16827135 (Version 1)
Quarter: 2019Q3

REPORT INFORMATION
  Report Type: Spontaneous
  Country: US (occurrence: US)
  Receive Date: 20190919
  Receipt Date: 20190919
  Transmission Date: 20191005
  Serious: Yes (Other)
  Sender: FDA-Public Use
  Company Number: US-AMGEN-USASP2019153507

PATIENT
  Age: 11 Year
  Sex: Male

DRUGS (3)
  1. ETANERCEPT [Suspect]
     Active Substance: ETANERCEPT
     Indication: JUVENILE IDIOPATHIC ARTHRITIS
     Dosage: UNK
     Route: 065
  2. METHOTREXATE. [Concomitant]
     Active Substance: METHOTREXATE
     Indication: JUVENILE IDIOPATHIC ARTHRITIS
     Dosage: UNK
     Route: 065
  3. PREDNISONE. [Concomitant]
     Active Substance: PREDNISONE
     Indication: JUVENILE IDIOPATHIC ARTHRITIS
     Dosage: UNK
     Route: 048

REACTIONS (15)
  - Malignant melanoma [Unknown]
  - Skin ulcer [Unknown]
  - Aspartate aminotransferase increased [Unknown]
  - Polyarthritis [Not Recovered/Not Resolved]
  - Myositis [Unknown]
  - Muscle oedema [Unknown]
  - Rash [Unknown]
  - Interstitial lung disease [Unknown]
  - Oral mucosal erythema [Unknown]
  - Rash erythematous [Unknown]
  - Alanine aminotransferase increased [Unknown]
  - Muscular weakness [Unknown]
  - Drug ineffective [Unknown]
  - Red blood cell sedimentation rate increased [Unknown]
  - Rash papular [Not Recovered/Not Resolved]
